FAERS Safety Report 8816751 (Version 1)
Quarter: 2012Q4

REPORT INFORMATION
  Report Type: Spontaneous
  Country: US (occurrence: None)
  Receive Date: 20121001
  Receipt Date: 20121001
  Transmission Date: 20130627
  Serious: Yes (Other)
  Sender: FDA-Public Use
  Company Number: ACET20120020

PATIENT
  Age: 59 Year
  Sex: Male
  Weight: 127.92 kg

DRUGS (1)
  1. METOPROLOL [Suspect]
     Indication: HYPERTENSION
     Route: 048
     Dates: start: 20120424, end: 20120924

REACTIONS (1)
  - Weight increased [None]
